FAERS Safety Report 9444657 (Version 1)
Quarter: 2013Q3

REPORT INFORMATION
  Report Type: Spontaneous
  Country: KR (occurrence: KR)
  Receive Date: 20130807
  Receipt Date: 20130807
  Transmission Date: 20140515
  Serious: Yes (Other)
  Sender: FDA-Public Use
  Company Number: KR-PFIZER INC-2013227959

PATIENT
  Sex: 0

DRUGS (1)
  1. EFEXOR XR [Suspect]
     Dosage: UNK

REACTIONS (1)
  - Cerebral haemorrhage [Unknown]
